FAERS Safety Report 8162331-1 (Version None)
Quarter: 2012Q1

REPORT INFORMATION
  Report Type: 
  Country: None (occurrence: None)
  Receive Date: 20120221
  Receipt Date: 20120208
  Transmission Date: 20120608
  Serious: Yes (Other)
  Sender: FDA-Public Use
  Company Number: US-1190454

PATIENT
  Age: 97 Year
  Sex: Female

DRUGS (1)
  1. BSS [Suspect]
     Indication: INTRAOCULAR LENS IMPLANT
     Dosage: INTRAOCULAR
     Dates: start: 20120124

REACTIONS (1)
  - TOXIC ANTERIOR SEGMENT SYNDROME [None]
